FAERS Safety Report 16032026 (Version 1)
Quarter: 2019Q1

REPORT INFORMATION
  Report Type: Report from Study
  Country: CA (occurrence: CA)
  Receive Date: 20190304
  Receipt Date: 20190304
  Transmission Date: 20190418
  Serious: Yes (Death, Hospitalization, Other)
  Sender: FDA-Public Use
  Company Number: CA-PFIZER INC-2019090787

PATIENT
  Age: 69 Year
  Sex: Male

DRUGS (10)
  1. COVERSYL [PERINDOPRIL ERBUMINE] [Concomitant]
     Active Substance: PERINDOPRIL ERBUMINE
     Dosage: 4 MG, 1X/DAY
  2. IDELALISIB [Interacting]
     Active Substance: IDELALISIB
     Dosage: 150 MG, 1X/DAY
     Route: 048
  3. GLICLAZIDE [Concomitant]
     Active Substance: GLICLAZIDE
     Dosage: UNK
  4. OLESTYR [Concomitant]
     Active Substance: CHOLESTYRAMINE
     Dosage: UNK
  5. IDELALISIB [Interacting]
     Active Substance: IDELALISIB
     Indication: CHRONIC LYMPHOCYTIC LEUKAEMIA
     Dosage: 150 MG, 2X/DAY
     Route: 048
  6. LEVETIRACETAM. [Concomitant]
     Active Substance: LEVETIRACETAM
     Dosage: 500 MG, 3X/DAY
  7. ACETYLSALICYLIC ACID [Concomitant]
     Active Substance: ASPIRIN
     Dosage: UNK, 1X/DAY
  8. LANSOPRAZOLE. [Concomitant]
     Active Substance: LANSOPRAZOLE
     Dosage: UNK
  9. VORICONAZOLE. [Suspect]
     Active Substance: VORICONAZOLE
     Dosage: 200 MG, 3X/DAY
  10. IDELALISIB [Interacting]
     Active Substance: IDELALISIB
     Dosage: 150 MG, 1X/DAY
     Route: 048

REACTIONS (5)
  - Herpes zoster [Fatal]
  - Off label use [Fatal]
  - Dehydration [Fatal]
  - Disease progression [Fatal]
  - Drug interaction [Fatal]
